FAERS Safety Report 26112432 (Version 1)
Quarter: 2025Q4

REPORT INFORMATION
  Report Type: Spontaneous
  Country: US (occurrence: US)
  Receive Date: 20251202
  Receipt Date: 20251202
  Transmission Date: 20260117
  Serious: Yes (Other)
  Sender: MYLAN
  Company Number: US-MYLANLABS-2025M1101585

PATIENT
  Age: 3 Year
  Sex: Male

DRUGS (16)
  1. MYCOPHENOLATE MOFETIL [Suspect]
     Active Substance: MYCOPHENOLATE MOFETIL
     Indication: Pemphigus
     Dosage: 20 MILLIGRAM/KILOGRAM, QD
  2. MYCOPHENOLATE MOFETIL [Suspect]
     Active Substance: MYCOPHENOLATE MOFETIL
     Dosage: 20 MILLIGRAM/KILOGRAM, QD
     Route: 065
  3. MYCOPHENOLATE MOFETIL [Suspect]
     Active Substance: MYCOPHENOLATE MOFETIL
     Dosage: 20 MILLIGRAM/KILOGRAM, QD
     Route: 065
  4. MYCOPHENOLATE MOFETIL [Suspect]
     Active Substance: MYCOPHENOLATE MOFETIL
     Dosage: 20 MILLIGRAM/KILOGRAM, QD
  5. DAPSONE [Suspect]
     Active Substance: DAPSONE
     Indication: Pemphigus
     Dosage: 2 MILLIGRAM/KILOGRAM, QD
  6. DAPSONE [Suspect]
     Active Substance: DAPSONE
     Dosage: 2 MILLIGRAM/KILOGRAM, QD
     Route: 065
  7. DAPSONE [Suspect]
     Active Substance: DAPSONE
     Dosage: 2 MILLIGRAM/KILOGRAM, QD
     Route: 065
  8. DAPSONE [Suspect]
     Active Substance: DAPSONE
     Dosage: 2 MILLIGRAM/KILOGRAM, QD
  9. PREDNISOLONE [Suspect]
     Active Substance: PREDNISOLONE
     Indication: Pemphigus
     Dosage: 1 MILLIGRAM/KILOGRAM, QD, FIRST TAPER
  10. PREDNISOLONE [Suspect]
     Active Substance: PREDNISOLONE
     Dosage: 1 MILLIGRAM/KILOGRAM, QD, FIRST TAPER
  11. PREDNISOLONE [Suspect]
     Active Substance: PREDNISOLONE
     Dosage: 1 MILLIGRAM/KILOGRAM, QD, FIRST TAPER
     Route: 065
  12. PREDNISOLONE [Suspect]
     Active Substance: PREDNISOLONE
     Dosage: 1 MILLIGRAM/KILOGRAM, QD, FIRST TAPER
     Route: 065
  13. PREDNISOLONE [Suspect]
     Active Substance: PREDNISOLONE
     Dosage: 1 MILLIGRAM/KILOGRAM, QD, SECOND TAPER
  14. PREDNISOLONE [Suspect]
     Active Substance: PREDNISOLONE
     Dosage: 1 MILLIGRAM/KILOGRAM, QD, SECOND TAPER
  15. PREDNISOLONE [Suspect]
     Active Substance: PREDNISOLONE
     Dosage: 1 MILLIGRAM/KILOGRAM, QD, SECOND TAPER
     Route: 065
  16. PREDNISOLONE [Suspect]
     Active Substance: PREDNISOLONE
     Dosage: 1 MILLIGRAM/KILOGRAM, QD, SECOND TAPER
     Route: 065

REACTIONS (6)
  - Onychomadesis [Recovering/Resolving]
  - Blister [Recovering/Resolving]
  - Skin disorder [Recovering/Resolving]
  - Blood immunoglobulin G increased [Recovering/Resolving]
  - Drug ineffective [Unknown]
  - Product use in unapproved indication [Unknown]
